FAERS Safety Report 7483707-1 (Version None)
Quarter: 2011Q2

REPORT INFORMATION
  Report Type: 
  Country: None (occurrence: None)
  Receive Date: 20110517
  Receipt Date: 20110504
  Transmission Date: 20111010
  Serious: Yes (Hospitalization)
  Sender: FDA-Public Use
  Company Number: PHHY2010FR90990

PATIENT
  Sex: Female

DRUGS (4)
  1. ZOMETA [Suspect]
     Indication: METASTASES TO BONE
     Dosage: 4 MG,
     Route: 042
     Dates: start: 20091001
  2. MORPHINE SULFATE [Suspect]
  3. ACETAMINOPHEN [Concomitant]
  4. DURAGESIC-100 [Concomitant]

REACTIONS (6)
  - ASTHENIA [None]
  - DECREASED APPETITE [None]
  - BACK PAIN [None]
  - HEADACHE [None]
  - CONSTIPATION [None]
  - SUBILEUS [None]
